FAERS Safety Report 5185564-5 (Version None)
Quarter: 2006Q4

REPORT INFORMATION
  Report Type: 
  Country: None (occurrence: None)
  Receive Date: 20061220
  Receipt Date: 20060808
  Transmission Date: 20070319
  Serious: No
  Sender: FDA-Public Use
  Company Number: US-GLAXOSMITHKLINE-A0615738A

PATIENT
  Sex: Female

DRUGS (1)
  1. NICODERM CQ [Suspect]

REACTIONS (7)
  - BACK PAIN [None]
  - CHEST PAIN [None]
  - DISTURBANCE IN ATTENTION [None]
  - DIZZINESS [None]
  - FEELING ABNORMAL [None]
  - HEADACHE [None]
  - PAIN [None]
